FAERS Safety Report 5058491-1 (Version None)
Quarter: 2006Q3

REPORT INFORMATION
  Report Type: 
  Country: None (occurrence: None)
  Receive Date: 20060721
  Receipt Date: 20041223
  Transmission Date: 20061208
  Serious: Yes (Death, Hospitalization, Other)
  Sender: FDA-Public Use
  Company Number: MX-ABBOTT-04P-107-0284578-00

PATIENT
  Sex: Female
  Weight: 68 kg

DRUGS (7)
  1. KALETRA [Suspect]
     Indication: HIV TEST POSITIVE
     Route: 048
     Dates: start: 20040414
  2. BACTRIM [Concomitant]
     Indication: INFECTION
     Dates: start: 20041212
  3. ITRACONAZOLE [Concomitant]
     Indication: INFECTION
     Dates: start: 20041212
  4. RANITIDINE [Concomitant]
     Indication: PROPHYLAXIS AGAINST GASTROINTESTINAL ULCER
     Dates: start: 20041212
  5. LOPERAMIDE [Concomitant]
     Indication: DIARRHOEA
     Dates: start: 20041212
  6. CEFTRIAXONE [Concomitant]
     Indication: INFECTION
     Dates: start: 20041214
  7. LAMIVUDINE AND ZIDOVUDINE [Concomitant]
     Indication: DRUG USE FOR UNKNOWN INDICATION
     Dates: start: 20040414

REACTIONS (15)
  - DEATH [None]
  - DEHYDRATION [None]
  - DIARRHOEA [None]
  - ELECTROLYTE IMBALANCE [None]
  - HAEMOGLOBIN DECREASED [None]
  - HEPATIC STEATOSIS [None]
  - HYPONATRAEMIA [None]
  - NAUSEA [None]
  - NORMOCHROMIC NORMOCYTIC ANAEMIA [None]
  - ORAL CANDIDIASIS [None]
  - PYELONEPHRITIS [None]
  - PYREXIA [None]
  - SPLENOMEGALY [None]
  - TACHYCARDIA [None]
  - URINARY TRACT INFECTION [None]
